FAERS Safety Report 7361194-1 (Version None)
Quarter: 2011Q1

REPORT INFORMATION
  Report Type: 
  Country: None (occurrence: None)
  Receive Date: 20110318
  Receipt Date: 20110309
  Transmission Date: 20110831
  Serious: Yes (Other)
  Sender: FDA-Public Use
  Company Number: BR-SANOFI-AVENTIS-2011SA014824

PATIENT
  Age: 56 Year
  Sex: Male
  Weight: 87 kg

DRUGS (8)
  1. GLIBENCLAMIDE [Concomitant]
     Indication: TYPE 2 DIABETES MELLITUS
     Route: 048
  2. DIOVANE [Concomitant]
     Indication: BLOOD PRESSURE
     Route: 048
  3. AUTOPEN 24 [Suspect]
  4. NOVORAPID [Concomitant]
     Indication: TYPE 2 DIABETES MELLITUS
  5. LANTUS [Suspect]
     Indication: TYPE 2 DIABETES MELLITUS
     Route: 058
     Dates: start: 20050101
  6. SELOZOK [Concomitant]
     Indication: BLOOD PRESSURE
     Route: 048
  7. SIMVASTATIN [Concomitant]
     Route: 048
  8. FUROSEMIDE [Concomitant]
     Indication: DIURETIC THERAPY
     Route: 048
     Dates: start: 20060101

REACTIONS (5)
  - BLINDNESS [None]
  - HYPERGLYCAEMIA [None]
  - RETINAL HAEMORRHAGE [None]
  - IRRITABILITY [None]
  - DIABETIC RETINOPATHY [None]
